FAERS Safety Report 7906862-5 (Version None)
Quarter: 2011Q4

REPORT INFORMATION
  Report Type: 
  Country: None (occurrence: None)
  Receive Date: 20111110
  Receipt Date: 20111103
  Transmission Date: 20120403
  Serious: Yes (Hospitalization, Other)
  Sender: FDA-Public Use
  Company Number: FR-PFIZER INC-2011268875

PATIENT
  Age: 50 Year
  Sex: Female

DRUGS (4)
  1. PREDNISOLONE [Concomitant]
     Indication: ASTHMA
     Dosage: 80 MG
     Dates: start: 20110831
  2. ATROVENT [Concomitant]
     Indication: ASTHMA
     Dosage: UNK
     Dates: start: 20110831
  3. BRICANYL [Concomitant]
     Indication: ASTHMA
     Dosage: UNK
     Dates: start: 20110831
  4. SOLU-MEDROL [Suspect]
     Dosage: 120 MG, 1X/DAY
     Route: 042
     Dates: start: 20110906

REACTIONS (4)
  - DYSPNOEA [None]
  - PRURITUS [None]
  - BRONCHOSPASM [None]
  - URTICARIA [None]
